FAERS Safety Report 9475561 (Version 1)
Quarter: 2013Q3

REPORT INFORMATION
  Report Type: Spontaneous
  Country: US (occurrence: None)
  Receive Date: 20130822
  Receipt Date: 20130822
  Transmission Date: 20140515
  Serious: No
  Sender: FDA-Public Use
  Company Number: None

PATIENT
  Sex: Female

DRUGS (4)
  1. BARACLUDE [Suspect]
     Dosage: TAKE 1 TABLET BY MOUTH EVERY DAY
     Route: 048
  2. BONIVA [Concomitant]
  3. CENTRUM SILVER [Concomitant]
  4. CALCIUM [Concomitant]

REACTIONS (3)
  - Nausea [None]
  - Abdominal pain upper [None]
  - Gastrointestinal disorder [None]
